FAERS Safety Report 4757467-9 (Version None)
Quarter: 2005Q3

REPORT INFORMATION
  Report Type: 
  Country: None (occurrence: None)
  Receive Date: 20050831
  Receipt Date: 20040427
  Transmission Date: 20060218
  Serious: Yes (Other)
  Sender: FDA-Public Use
  Company Number: US-ROCHE-365853

PATIENT
  Age: 1 Hour
  Sex: Male
  Weight: 3.3 kg

DRUGS (2)
  1. ACCUTANE [Suspect]
     Dates: start: 20040112, end: 20040408
  2. BIRTH CONTROL PILLS [Concomitant]
     Indication: CONTRACEPTION
     Dates: end: 20040415

REACTIONS (2)
  - DRUG EXPOSURE DURING PREGNANCY [None]
  - TORTICOLLIS [None]
